FAERS Safety Report 18871788 (Version 2)
Quarter: 2021Q1

REPORT INFORMATION
  Report Type: Report from Study
  Country: None (occurrence: RU)
  Receive Date: 20210210
  Receipt Date: 20210211
  Transmission Date: 20210420
  Serious: Yes (Death, Other)
  Sender: FDA-Public Use
  Company Number: RU-ABBVIE-20K-251-3669705-00

PATIENT
  Age: 61 Year
  Sex: Female
  Weight: 65 kg

DRUGS (33)
  1. VICASOL [Concomitant]
     Indication: COAGULOPATHY
     Route: 042
     Dates: start: 20201014, end: 20201023
  2. EMETRON [Concomitant]
     Indication: PRODUCT USED FOR UNKNOWN INDICATION
     Route: 042
     Dates: start: 20201016, end: 20201020
  3. MILDRONATE [Concomitant]
     Active Substance: MELDONIUM
     Indication: PRODUCT USED FOR UNKNOWN INDICATION
     Route: 042
     Dates: start: 20201015, end: 20201130
  4. ALLOPURINOL. [Concomitant]
     Active Substance: ALLOPURINOL
     Indication: PRODUCT USED FOR UNKNOWN INDICATION
     Route: 048
     Dates: start: 20201013, end: 20201130
  5. MONOFER [Concomitant]
     Active Substance: IRON ISOMALTOSIDE 1000
     Indication: ANAEMIA OF CHRONIC DISEASE
     Route: 042
     Dates: start: 20201107, end: 20201107
  6. IMBIOGLOBULINE [Concomitant]
     Indication: PURPURA
     Dates: start: 20201111, end: 20201113
  7. DACOGEN [Concomitant]
     Active Substance: DECITABINE
     Indication: ACUTE MYELOID LEUKAEMIA
     Dates: start: 20201016, end: 20201020
  8. PIRACETAM [Concomitant]
     Active Substance: PIRACETAM
     Indication: PRODUCT USED FOR UNKNOWN INDICATION
     Route: 042
     Dates: start: 20201015, end: 20201130
  9. VICASOL [Concomitant]
     Route: 042
     Dates: start: 20201118, end: 20201119
  10. TRANEXAM [Concomitant]
     Active Substance: TRANEXAMIC ACID
     Route: 042
     Dates: start: 20201104, end: 20201116
  11. VENCLEXTA [Suspect]
     Active Substance: VENETOCLAX
     Indication: ACUTE MYELOID LEUKAEMIA
     Route: 048
     Dates: start: 20201016
  12. GLUCOSE [Concomitant]
     Active Substance: DEXTROSE
     Indication: PRODUCT USED FOR UNKNOWN INDICATION
     Route: 042
     Dates: start: 20201015, end: 20201130
  13. ACICLOVIR [Concomitant]
     Active Substance: ACYCLOVIR
     Route: 048
     Dates: start: 20201127, end: 20201201
  14. CALCII CHLORIDUM 10% [Concomitant]
     Route: 042
     Dates: start: 20201020, end: 20201021
  15. DICYNONE [Concomitant]
     Active Substance: ETHAMSYLATE
     Indication: COAGULOPATHY
     Route: 042
     Dates: start: 20201014, end: 20201130
  16. SODIUM CHLORIDE. [Concomitant]
     Active Substance: SODIUM CHLORIDE
     Indication: PRODUCT USED FOR UNKNOWN INDICATION
     Route: 042
     Dates: start: 20201014, end: 20201130
  17. POTASSIUM CHLORIDE. [Concomitant]
     Active Substance: POTASSIUM CHLORIDE
     Indication: PRODUCT USED FOR UNKNOWN INDICATION
     Route: 042
     Dates: start: 20201015, end: 20201130
  18. CIPROFLOXACIN. [Concomitant]
     Active Substance: CIPROFLOXACIN
     Indication: PRODUCT USED FOR UNKNOWN INDICATION
     Route: 048
     Dates: start: 20201013, end: 20201013
  19. RIBOXIN [Concomitant]
     Active Substance: INOSINE
     Indication: PRODUCT USED FOR UNKNOWN INDICATION
     Route: 042
     Dates: start: 20201015, end: 20201123
  20. ASCORUTIN [Concomitant]
     Active Substance: ASCORBIC ACID\RUTIN
     Indication: COAGULOPATHY
     Route: 048
     Dates: start: 20201014, end: 20201130
  21. CALCII CHLORIDUM 10% [Concomitant]
     Indication: COAGULOPATHY
     Route: 042
     Dates: start: 20201014, end: 20201014
  22. TRANEXAM [Concomitant]
     Active Substance: TRANEXAMIC ACID
     Indication: PURPURA
     Route: 042
     Dates: start: 20201014, end: 20201019
  23. IMBIOGLOBULINE [Concomitant]
     Route: 042
     Dates: start: 20201127, end: 20201130
  24. BIFIFORM [Concomitant]
     Active Substance: BIFIDOBACTERIUM LONGUM
     Indication: PRODUCT USED FOR UNKNOWN INDICATION
     Route: 048
     Dates: start: 20201120, end: 20201130
  25. VICASOL [Concomitant]
     Route: 042
     Dates: start: 20201026, end: 20201120
  26. ALMAGEL [Concomitant]
     Indication: PRODUCT USED FOR UNKNOWN INDICATION
     Route: 048
     Dates: start: 20201016, end: 20201117
  27. MAGNESIUM SULFATE. [Concomitant]
     Active Substance: MAGNESIUM SULFATE
     Indication: PRODUCT USED FOR UNKNOWN INDICATION
     Route: 042
     Dates: start: 20201015, end: 20201130
  28. TAVANIC [Concomitant]
     Active Substance: LEVOFLOXACIN
     Indication: PRODUCT USED FOR UNKNOWN INDICATION
     Route: 048
     Dates: start: 20201014, end: 20201117
  29. FLUCONAZOLE. [Concomitant]
     Active Substance: FLUCONAZOLE
     Indication: PRODUCT USED FOR UNKNOWN INDICATION
     Route: 048
     Dates: start: 20201014, end: 20201123
  30. VICASOL [Concomitant]
     Route: 042
     Dates: start: 20201125, end: 20201130
  31. ACICLOVIR [Concomitant]
     Active Substance: ACYCLOVIR
     Indication: EPSTEIN-BARR VIRUS INFECTION
     Route: 048
     Dates: start: 20201013, end: 20201016
  32. ACICLOVIR [Concomitant]
     Active Substance: ACYCLOVIR
     Route: 048
     Dates: start: 20201113, end: 20201127
  33. VALTREX [Concomitant]
     Active Substance: VALACYCLOVIR HYDROCHLORIDE
     Indication: PRODUCT USED FOR UNKNOWN INDICATION
     Route: 048
     Dates: start: 20201016, end: 20201113

REACTIONS (8)
  - Thrombocytopenia [Not Recovered/Not Resolved]
  - Pharyngitis [Recovered/Resolved]
  - Alanine aminotransferase increased [Recovered/Resolved]
  - Anaemia [Not Recovered/Not Resolved]
  - COVID-19 [Fatal]
  - Neutrophil count decreased [Recovered/Resolved]
  - Febrile neutropenia [Recovering/Resolving]
  - Aspartate aminotransferase increased [Recovered/Resolved]

NARRATIVE: CASE EVENT DATE: 20201017
